FAERS Safety Report 21346864 (Version 1)
Quarter: 2022Q3

REPORT INFORMATION
  Report Type: Spontaneous
  Country: CA (occurrence: CA)
  Receive Date: 20220918
  Receipt Date: 20220918
  Transmission Date: 20221027
  Serious: Yes (Other)
  Sender: FDA-Public Use
  Company Number: CA-NOVARTISPH-NVSC2022CA209678

PATIENT
  Sex: Male

DRUGS (1)
  1. TRILEPTAL [Suspect]
     Active Substance: OXCARBAZEPINE
     Indication: Product used for unknown indication
     Dosage: UNK, (50 TABLETS)
     Route: 048
     Dates: start: 2011

REACTIONS (2)
  - Encephalitis autoimmune [Unknown]
  - Immunodeficiency [Unknown]
